FAERS Safety Report 10920196 (Version 1)
Quarter: 2015Q1

REPORT INFORMATION
  Report Type: Spontaneous
  Country: US (occurrence: US)
  Receive Date: 20150317
  Receipt Date: 20150317
  Transmission Date: 20150721
  Serious: Yes (Life-Threatening)
  Sender: FDA-Public Use
  Company Number: US-JNJFOC-20150218676

PATIENT
  Sex: Female

DRUGS (1)
  1. TYLENOL PM [Suspect]
     Active Substance: ACETAMINOPHEN\DIPHENHYDRAMINE
     Indication: SUICIDE ATTEMPT
     Route: 048
     Dates: start: 200704

REACTIONS (4)
  - Intentional overdose [Unknown]
  - Metrorrhagia [Unknown]
  - Hypersomnia [Unknown]
  - Asthenia [Unknown]

NARRATIVE: CASE EVENT DATE: 200704
